FAERS Safety Report 12381945 (Version 3)
Quarter: 2016Q2

REPORT INFORMATION
  Report Type: Report from Study
  Country: CO (occurrence: CO)
  Receive Date: 20160518
  Receipt Date: 20160606
  Transmission Date: 20160815
  Serious: Yes (Hospitalization)
  Sender: FDA-Public Use
  Company Number: PHHY2016CO067366

PATIENT
  Sex: Female
  Weight: 55 kg

DRUGS (1)
  1. TASIGNA [Suspect]
     Active Substance: NILOTINIB
     Indication: CHRONIC MYELOID LEUKAEMIA
     Dosage: 2 DF, Q12H
     Route: 048

REACTIONS (6)
  - Cardiovascular disorder [Unknown]
  - Amnesia [Unknown]
  - Ingrowing nail [Unknown]
  - Pain in extremity [Unknown]
  - Gait disturbance [Unknown]
  - Hypoaesthesia [Unknown]
